FAERS Safety Report 11213743 (Version 1)
Quarter: 2015Q2

REPORT INFORMATION
  Report Type: Spontaneous
  Country: JP (occurrence: JP)
  Receive Date: 20150623
  Receipt Date: 20150623
  Transmission Date: 20150821
  Serious: Yes (Death, Other)
  Sender: FDA-Public Use
  Company Number: JP-BAXTER-2015BAX033945

PATIENT
  Age: 59 Year
  Sex: Female

DRUGS (3)
  1. ENDOXAN 1G [Suspect]
     Active Substance: CYCLOPHOSPHAMIDE
     Indication: PHAEOCHROMOCYTOMA MALIGNANT
     Dosage: 24 COURSES
     Route: 042
  2. VINCRISTINE SULFATE. [Suspect]
     Active Substance: VINCRISTINE SULFATE
     Indication: PHAEOCHROMOCYTOMA MALIGNANT
     Dosage: 24 COURSES
     Route: 042
  3. DACARBAZINE. [Suspect]
     Active Substance: DACARBAZINE
     Indication: PHAEOCHROMOCYTOMA MALIGNANT
     Dosage: 24 COURSES
     Route: 042

REACTIONS (4)
  - Pneumonia [Fatal]
  - Myelodysplastic syndrome [Not Recovered/Not Resolved]
  - Leukaemoid reaction [Unknown]
  - Infection [Unknown]
